FAERS Safety Report 12478873 (Version 1)
Quarter: 2016Q2

REPORT INFORMATION
  Report Type: Other
  Country: US (occurrence: US)
  Receive Date: 20160620
  Receipt Date: 20160620
  Transmission Date: 20160815
  Serious: No
  Sender: FDA-Public Use
  Company Number: US-JUBILANT GENERICS LIMITED-1053997

PATIENT
  Age: 65 Year
  Sex: Female
  Weight: 75.3 kg

DRUGS (3)
  1. ASPIRIN. [Concomitant]
     Active Substance: ASPIRIN
  2. VALACYCLOVIR [Suspect]
     Active Substance: VALACYCLOVIR HYDROCHLORIDE
  3. ATENOLOL. [Concomitant]
     Active Substance: ATENOLOL

REACTIONS (7)
  - Memory impairment [Unknown]
  - Back pain [Unknown]
  - Headache [Recovered/Resolved]
  - Mood swings [Unknown]
  - Chest pain [Unknown]
  - Pressure of speech [Unknown]
  - Asthenia [Unknown]

NARRATIVE: CASE EVENT DATE: 20150921
